FAERS Safety Report 16373427 (Version 3)
Quarter: 2019Q3

REPORT INFORMATION
  Report Type: Spontaneous
  Country: PL (occurrence: PL)
  Receive Date: 20190530
  Receipt Date: 20190716
  Transmission Date: 20191004
  Serious: Yes (Life-Threatening)
  Sender: FDA-Public Use
  Company Number: PL-PURDUE-GBR-2019-0066792

PATIENT
  Age: 68 Year
  Sex: Male

DRUGS (12)
  1. TICAGRELOR. [Suspect]
     Active Substance: TICAGRELOR
     Dosage: UNK
     Route: 065
  2. GLICLAZIDE [Suspect]
     Active Substance: GLICLAZIDE
     Indication: CARDIOVASCULAR EVENT PROPHYLAXIS
     Dosage: 60 MG, Q24H, SR
     Route: 048
  3. GLICLAZIDE [Suspect]
     Active Substance: GLICLAZIDE
     Dosage: UNK
     Route: 065
  4. ATORVASTATIN [Suspect]
     Active Substance: ATORVASTATIN
     Indication: CARDIOVASCULAR EVENT PROPHYLAXIS
     Dosage: 40 MG, Q24H
     Route: 065
  5. INSULIN [Suspect]
     Active Substance: INSULIN NOS
     Indication: BLOOD GLUCOSE ABNORMAL
     Dosage: UNK
     Route: 065
  6. ATORVASTATIN [Suspect]
     Active Substance: ATORVASTATIN
     Dosage: UNK
     Route: 065
  7. ACETYLSALICYLIC ACID [Suspect]
     Active Substance: ASPIRIN
     Indication: CARDIOVASCULAR EVENT PROPHYLAXIS
     Dosage: 75 MG, DAILY (1 X 75 MG/DAY)
     Route: 065
  8. NON-PMN THEOPHYLLINE [Suspect]
     Active Substance: THEOPHYLLINE ANHYDROUS
     Indication: CARDIOVASCULAR EVENT PROPHYLAXIS
     Dosage: 300 MG, Q12H
     Route: 065
  9. BISOPROLOL [Suspect]
     Active Substance: BISOPROLOL
     Dosage: 2.5 MG, Q24H
     Route: 065
  10. TICAGRELOR. [Suspect]
     Active Substance: TICAGRELOR
     Indication: CARDIOVASCULAR EVENT PROPHYLAXIS
     Dosage: 90 MG Q12H
     Route: 048
  11. BISOPROLOL [Suspect]
     Active Substance: BISOPROLOL
     Indication: CARDIOVASCULAR EVENT PROPHYLAXIS
     Dosage: 7.5 MG, DAILY
     Route: 065
  12. VALSARTAN. [Suspect]
     Active Substance: VALSARTAN
     Indication: CARDIOVASCULAR EVENT PROPHYLAXIS
     Dosage: 80 MG, Q24H
     Route: 065

REACTIONS (6)
  - Chest pain [Unknown]
  - Intentional dose omission [Unknown]
  - Treatment noncompliance [Unknown]
  - Blood pressure increased [Recovered/Resolved]
  - Blood glucose increased [Unknown]
  - Lipid metabolism disorder [Recovered/Resolved]

NARRATIVE: CASE EVENT DATE: 201801
